FAERS Safety Report 20837675 (Version 3)
Quarter: 2022Q2

REPORT INFORMATION
  Report Type: Spontaneous
  Country: IT (occurrence: IT)
  Receive Date: 20220517
  Receipt Date: 20220523
  Transmission Date: 20220720
  Serious: Yes (Hospitalization, Other)
  Sender: FDA-Public Use
  Company Number: IT-ORGANON-O2205ITA001097

PATIENT
  Age: 93 Year
  Sex: Female

DRUGS (15)
  1. SIMVASTATIN [Suspect]
     Active Substance: SIMVASTATIN
     Dosage: 20 MG ON ALTERNATE DAYS
     Route: 048
  2. SIMVASTATIN [Suspect]
     Active Substance: SIMVASTATIN
     Dosage: 40 MG ONCE A DAY
     Route: 048
  3. SIMVASTATIN [Suspect]
     Active Substance: SIMVASTATIN
     Dosage: 20 MG ON ALTERNATED DAYS
     Route: 048
  4. SIMVASTATIN [Suspect]
     Active Substance: SIMVASTATIN
     Dosage: 20 MG 2 DAYS PER WEEK
     Route: 048
  5. LOSARTAN POTASSIUM [Suspect]
     Active Substance: LOSARTAN POTASSIUM
     Dosage: 50 1/2 CP A DAY
     Route: 048
  6. ASPIRIN [Suspect]
     Active Substance: ASPIRIN
     Dosage: 30 MG /DAY
  7. ASPIRIN [Suspect]
     Active Substance: ASPIRIN
     Dosage: 100MG ONCE A DAY
  8. METOPROLOL [Suspect]
     Active Substance: METOPROLOL
     Dosage: 25 MG ONCE
  9. METOPROLOL [Suspect]
     Active Substance: METOPROLOL
     Dosage: 100 MG ONCE A DAY
  10. METOPROLOL [Suspect]
     Active Substance: METOPROLOL
     Dosage: 50 MG PER DAY
  11. LEVOTHYROXINE [Suspect]
     Active Substance: LEVOTHYROXINE
     Dosage: 75 1 CP
  12. PANTOPRAZOLE [Suspect]
     Active Substance: PANTOPRAZOLE
     Dosage: 40 MG ONCE A DAY
  13. CLOPIDOGREL [Suspect]
     Active Substance: CLOPIDOGREL BISULFATE
     Dosage: 75 MG ONCE A DAY
  14. AMLODIPINE [Suspect]
     Active Substance: AMLODIPINE BESYLATE
     Dosage: 10 MG A DAY
  15. ISOSORBIDE MONONITRATE [Suspect]
     Active Substance: ISOSORBIDE MONONITRATE
     Dosage: 20 MG TWICE A DAY

REACTIONS (1)
  - Nephropathy toxic [Recovering/Resolving]
